FAERS Safety Report 4290225-0 (Version None)
Quarter: 2004Q1

REPORT INFORMATION
  Report Type: 
  Country: None (occurrence: None)
  Receive Date: 20040210
  Receipt Date: 20030912
  Transmission Date: 20041129
  Serious: Yes (Life-Threatening)
  Sender: FDA-Public Use
  Company Number: PHEH2003US08350

PATIENT
  Age: 76 Year
  Sex: Female
  Weight: 81 kg

DRUGS (13)
  1. DHT                                     /USA/ [Concomitant]
  2. REGLAN                                  /USA/ [Concomitant]
  3. SINEMET [Concomitant]
  4. MIACALCIN [Suspect]
     Indication: OSTEOPOROSIS
     Dosage: UNK, DAILY
     Route: 045
     Dates: start: 20030823
  5. VITAMIN D [Concomitant]
  6. ACTONEL                                 /USA/ [Concomitant]
  7. KLONOPIN [Concomitant]
  8. ZOLOFT [Concomitant]
  9. ADVAIR DISKUS 100/50 [Concomitant]
  10. HYZAAR [Concomitant]
  11. NEXIUM [Concomitant]
  12. SULAR [Concomitant]
  13. BENICAR [Concomitant]

REACTIONS (8)
  - ARTHRALGIA [None]
  - BACK PAIN [None]
  - COUGH [None]
  - DYSURIA [None]
  - HEADACHE [None]
  - INSOMNIA [None]
  - PARAESTHESIA ORAL [None]
  - SWELLING FACE [None]
